FAERS Safety Report 7759393-X (Version None)
Quarter: 2011Q3

REPORT INFORMATION
  Report Type: 
  Country: None (occurrence: None)
  Receive Date: 20110919
  Receipt Date: 20110912
  Transmission Date: 20111222
  Serious: Yes (Other)
  Sender: FDA-Public Use
  Company Number: JP-ROCHE-723203

PATIENT
  Sex: Male
  Weight: 56 kg

DRUGS (11)
  1. PREDNISOLONE [Concomitant]
     Dosage: 10MG IN MORNING AND 5MG IN DAYTIME
     Route: 048
     Dates: start: 20081019
  2. ACTEMRA [Suspect]
     Indication: WEGENER'S GRANULOMATOSIS
     Route: 041
     Dates: start: 20100129
  3. PREDNISOLONE [Concomitant]
     Dosage: 10MG IN MORNING AND 5MG AND 1MG IN DAYTIME
     Route: 048
     Dates: start: 20081227
  4. CRESTOR [Concomitant]
     Route: 048
     Dates: start: 20091009
  5. ACTONEL [Concomitant]
     Route: 048
     Dates: start: 20090212
  6. ZOLPIDEM [Concomitant]
     Route: 048
  7. LOXOPROFEN SODIUM [Concomitant]
     Route: 048
     Dates: start: 20081016
  8. RABEPRAZOLE SODIUM [Concomitant]
     Route: 048
     Dates: start: 20090723
  9. SULFAMETHOXAZOLE AND TRIMETHOPRIM [Concomitant]
     Route: 048
     Dates: start: 20081016
  10. REBAMIPIDE [Concomitant]
     Route: 048
     Dates: start: 20081016
  11. ALPRAZOLAM [Concomitant]
     Route: 048
     Dates: start: 20081103

REACTIONS (5)
  - OROPHARYNGEAL DISCOMFORT [None]
  - ALTERED STATE OF CONSCIOUSNESS [None]
  - DYSPNOEA [None]
  - SYNCOPE [None]
  - CHALAZION [None]
